FAERS Safety Report 16445967 (Version 1)
Quarter: 2019Q2

REPORT INFORMATION
  Report Type: Spontaneous
  Country: US (occurrence: US)
  Receive Date: 20190618
  Receipt Date: 20190618
  Transmission Date: 20190711
  Serious: No
  Sender: FDA-Public Use
  Company Number: US-TEVA-2019-US-1060751

PATIENT
  Sex: Female

DRUGS (2)
  1. IBUPROFEN. [Suspect]
     Active Substance: IBUPROFEN
     Route: 065
  2. TRANEXAMIC ACID. [Suspect]
     Active Substance: TRANEXAMIC ACID
     Indication: MENSTRUAL DISORDER
     Route: 048

REACTIONS (3)
  - Inappropriate schedule of product administration [Unknown]
  - Dizziness [Unknown]
  - Product dosage form confusion [Unknown]

NARRATIVE: CASE EVENT DATE: 20190603
